FAERS Safety Report 17124047 (Version 1)
Quarter: 2019Q4

REPORT INFORMATION
  Report Type: Spontaneous
  Country: US (occurrence: US)
  Receive Date: 20191206
  Receipt Date: 20191206
  Transmission Date: 20200122
  Serious: Yes (Hospitalization)
  Sender: FDA-Public Use
  Company Number: US-ABBVIE-19P-163-2984379-00

PATIENT
  Sex: Female
  Weight: 8 kg

DRUGS (1)
  1. SYNAGIS [Suspect]
     Active Substance: PALIVIZUMAB
     Indication: PRODUCT USED FOR UNKNOWN INDICATION
     Dosage: 50MG/0.5ML VL LIQUID. MONTHLY
     Route: 030
     Dates: start: 20181114

REACTIONS (7)
  - Pyrexia [Unknown]
  - Cough [Unknown]
  - Weight gain poor [Unknown]
  - Hyperhidrosis [Not Recovered/Not Resolved]
  - Respiratory distress [Unknown]
  - Respiratory failure [Unknown]
  - Respiratory syncytial virus infection [Unknown]
